FAERS Safety Report 9120801 (Version 2)
Quarter: 2013Q1

REPORT INFORMATION
  Report Type: Spontaneous
  Country: JP (occurrence: JP)
  Receive Date: 20130226
  Receipt Date: 20130227
  Transmission Date: 20140127
  Serious: Yes (Other)
  Sender: FDA-Public Use
  Company Number: JP-PFIZER INC-2013069686

PATIENT
  Age: 74 Year
  Sex: Female

DRUGS (9)
  1. GABAPEN [Suspect]
     Dosage: 200 MG, 1X/DAY
     Route: 048
     Dates: start: 200907
  2. GABAPEN [Suspect]
     Dosage: 200 MG, 3X/DAY
     Route: 048
     Dates: end: 20130220
  3. MELOXICAM [Concomitant]
     Dosage: 10 MG/DAY
     Route: 048
  4. CRESTOR [Concomitant]
     Dosage: 5 MG/DAY
     Route: 048
  5. METHYCOBAL [Concomitant]
     Dosage: 500 UG/DAY
     Route: 048
  6. MYONAL [Concomitant]
     Dosage: 50 MG/DAY
     Route: 048
  7. VITAMEDIN CAPSULE [Concomitant]
     Dosage: UNK
     Route: 048
  8. ECARD HD [Concomitant]
     Dosage: UNK
     Route: 048
  9. AMLODIN [Concomitant]
     Dosage: 2.5 MG/DAY
     Route: 048

REACTIONS (1)
  - Renal impairment [Unknown]
